FAERS Safety Report 9170391 (Version 1)
Quarter: 2013Q1

REPORT INFORMATION
  Report Type: Report from Study
  Country: CA (occurrence: CA)
  Receive Date: 20130319
  Receipt Date: 20130319
  Transmission Date: 20140127
  Serious: Yes (Other)
  Sender: FDA-Public Use
  Company Number: CA-JNJFOC-20130305942

PATIENT
  Age: 48 Year
  Sex: Male
  Weight: 114 kg

DRUGS (5)
  1. REMICADE [Suspect]
     Indication: COLITIS ULCERATIVE
     Route: 042
     Dates: start: 2009
  2. ASACOL [Concomitant]
     Dosage: 3 CO DIE
     Route: 065
  3. SALOFALK [Concomitant]
     Dosage: 4G-60
     Route: 065
  4. NEXIUM [Concomitant]
     Dosage: DIE
     Route: 065
  5. CODEINE [Concomitant]
     Route: 065

REACTIONS (1)
  - Biopsy liver [Unknown]
